FAERS Safety Report 8693742 (Version 3)
Quarter: 2013Q1

REPORT INFORMATION
  Report Type: Spontaneous
  Country: US (occurrence: US)
  Receive Date: 20120731
  Receipt Date: 20130118
  Transmission Date: 20140127
  Serious: Yes (Other)
  Sender: FDA-Public Use
  Company Number: US-BAYER-2012-075935

PATIENT
  Age: 65 Year
  Sex: Female
  Weight: 92.97 kg

DRUGS (8)
  1. BETASERON [Suspect]
     Indication: MULTIPLE SCLEROSIS
     Dosage: .3 MG, QOD
     Route: 058
  2. PRILOSEC [Concomitant]
     Indication: GASTROOESOPHAGEAL REFLUX DISEASE
     Dosage: 20 MG, UNK
  3. CITALOPRAM [Concomitant]
     Indication: DEPRESSION
     Dosage: 40 MG, UNK
  4. VITAMIN D [Concomitant]
     Dosage: 50,000 UNITS EVERY OTHER WK.
  5. LISINOPRIL/HCTZ [Concomitant]
     Indication: BLOOD PRESSURE INCREASED
  6. CALCIUM [Concomitant]
     Dosage: 1200 MG, UNK
  7. CRESTOR [Concomitant]
     Indication: BLOOD CHOLESTEROL INCREASED
     Dosage: 20 MG, UNK
  8. GABAPENTIN [Concomitant]
     Indication: LIMB DISCOMFORT
     Dosage: 300 MG, TID

REACTIONS (4)
  - Multiple sclerosis relapse [Recovering/Resolving]
  - Dysstasia [Recovering/Resolving]
  - Pain in extremity [Recovering/Resolving]
  - Mobility decreased [Recovering/Resolving]
